FAERS Safety Report 13864689 (Version 1)
Quarter: 2017Q3

REPORT INFORMATION
  Report Type: Spontaneous
  Country: US (occurrence: US)
  Receive Date: 20170813
  Receipt Date: 20170813
  Transmission Date: 20171127
  Serious: Yes (Other)
  Sender: FDA-Public Use
  Company Number: None

PATIENT
  Age: 8 Year
  Sex: Female
  Weight: 34.2 kg

DRUGS (6)
  1. MONTELUKAST [Suspect]
     Active Substance: MONTELUKAST SODIUM
     Indication: MULTIPLE ALLERGIES
     Dosage: ?          QUANTITY:30 TABLET(S);?
     Route: 048
     Dates: start: 20170504, end: 20170729
  2. IRON SUPPLEMENT [Concomitant]
     Active Substance: IRON
  3. CULTURELLE [Concomitant]
     Active Substance: LACTOBACILLUS RHAMNOSUS
  4. MULTI VITAMIN [Concomitant]
     Active Substance: VITAMINS
  5. BENEFIBER [Concomitant]
     Active Substance: STARCH, WHEAT
  6. DOCUSATE SODIUM. [Concomitant]
     Active Substance: DOCUSATE SODIUM

REACTIONS (8)
  - Weight increased [None]
  - Insomnia [None]
  - Abnormal behaviour [None]
  - Mental disorder [None]
  - Aggression [None]
  - Hair growth abnormal [None]
  - Personality disorder [None]
  - Agitation [None]

NARRATIVE: CASE EVENT DATE: 20170601
